FAERS Safety Report 5810478-4 (Version None)
Quarter: 2008Q3

REPORT INFORMATION
  Report Type: 
  Country: None (occurrence: None)
  Receive Date: 20080715
  Receipt Date: 20080703
  Transmission Date: 20090109
  Serious: Yes (Hospitalization, Other)
  Sender: FDA-Public Use
  Company Number: JP-PFIZER INC-2008052577

PATIENT
  Sex: Male

DRUGS (7)
  1. CHANTIX [Suspect]
     Indication: SMOKING CESSATION THERAPY
     Dosage: DAILY DOSE:2MG
     Route: 048
     Dates: start: 20080605, end: 20080612
  2. EUGLUCON [Concomitant]
     Indication: DIABETES MELLITUS
     Route: 048
  3. ASPIRIN [Concomitant]
     Indication: ARTERIOSCLEROSIS
     Route: 048
  4. BEZATOL - SLOW RELEASE [Concomitant]
     Indication: HYPERLIPIDAEMIA
     Route: 048
  5. LAC B [Concomitant]
     Indication: CONSTIPATION
     Route: 048
  6. URSO 250 [Concomitant]
     Indication: LIVER DISORDER
     Route: 048
  7. OMEPRAZOLE [Concomitant]
     Indication: REFLUX OESOPHAGITIS
     Route: 048

REACTIONS (2)
  - HEPATIC ENZYME INCREASED [None]
  - ILEUS [None]
